FAERS Safety Report 14680054 (Version 1)
Quarter: 2018Q1

REPORT INFORMATION
  Report Type: Spontaneous
  Country: US (occurrence: US)
  Receive Date: 20180325
  Receipt Date: 20180325
  Transmission Date: 20180509
  Serious: Yes (Disabling, Other)
  Sender: FDA-Public Use
  Company Number: None

PATIENT
  Age: 46 Year
  Sex: Female
  Weight: 49.5 kg

DRUGS (2)
  1. BUPROPIAN HCL XL 300 MG [Suspect]
     Active Substance: BUPROPION HYDROCHLORIDE
     Indication: ATTENTION DEFICIT/HYPERACTIVITY DISORDER
     Dosage: ?          QUANTITY:30 TABLET(S);?
     Route: 048
     Dates: start: 20180315, end: 20180323
  2. TYLENOL/ASPIRIN COMBO [Concomitant]

REACTIONS (4)
  - Depressed mood [None]
  - Anger [None]
  - Product substitution issue [None]
  - Swelling [None]

NARRATIVE: CASE EVENT DATE: 20180324
